FAERS Safety Report 7786543-1 (Version None)
Quarter: 2011Q3

REPORT INFORMATION
  Report Type: 
  Country: None (occurrence: None)
  Receive Date: 20110929
  Receipt Date: 20110923
  Transmission Date: 20111222
  Serious: Yes (Hospitalization)
  Sender: FDA-Public Use
  Company Number: FR-GLAXOSMITHKLINE-B0727179A

PATIENT
  Sex: Male

DRUGS (2)
  1. URBANYL [Concomitant]
     Indication: PRODUCT USED FOR UNKNOWN INDICATION
     Route: 065
     Dates: start: 20110417, end: 20110427
  2. LAMICTAL [Suspect]
     Indication: EPILEPSY
     Dosage: 50MG TWICE PER DAY
     Route: 048
     Dates: start: 20110417, end: 20110516

REACTIONS (17)
  - AGRANULOCYTOSIS [None]
  - PYREXIA [None]
  - TOXIC SKIN ERUPTION [None]
  - RENAL FAILURE [None]
  - DRUG RASH WITH EOSINOPHILIA AND SYSTEMIC SYMPTOMS [None]
  - EOSINOPHILIA [None]
  - LYMPHADENOPATHY [None]
  - RESPIRATORY DISORDER [None]
  - RASH PUSTULAR [None]
  - THROMBOCYTOPENIA [None]
  - RASH [None]
  - FOLLICULITIS [None]
  - LARYNGEAL DISORDER [None]
  - PRURITUS [None]
  - RASH MACULO-PAPULAR [None]
  - BLOOD PRESSURE DECREASED [None]
  - ERYTHEMA [None]
